FAERS Safety Report 12765163 (Version 3)
Quarter: 2016Q4

REPORT INFORMATION
  Report Type: Spontaneous
  Country: US (occurrence: US)
  Receive Date: 20160921
  Receipt Date: 20161130
  Transmission Date: 20170207
  Serious: Yes (Other)
  Sender: FDA-Public Use
  Company Number: US-APOTEX-2016AP011435

PATIENT
  Age: 41 Year
  Sex: Female

DRUGS (9)
  1. PAXIL [Suspect]
     Active Substance: PAROXETINE HYDROCHLORIDE
     Indication: PRODUCT USED FOR UNKNOWN INDICATION
     Dosage: 10 MG, UNK
     Route: 065
     Dates: start: 20151127
  2. DEPO-PROVERA [Suspect]
     Active Substance: MEDROXYPROGESTERONE ACETATE
     Indication: MENORRHAGIA
  3. DEPO-PROVERA [Suspect]
     Active Substance: MEDROXYPROGESTERONE ACETATE
     Indication: DYSMENORRHOEA
     Dosage: UNK, SINGLE
     Route: 065
     Dates: start: 20151106, end: 20151106
  4. TYLENOL PM [Suspect]
     Active Substance: ACETAMINOPHEN\DIPHENHYDRAMINE
     Indication: OVERDOSE
     Dosage: 50 DF, SINGLE
     Route: 065
  5. VALIUM [Concomitant]
     Active Substance: DIAZEPAM
     Indication: MOOD ALTERED
     Dosage: 10 MG, PRN
     Route: 065
  6. TRAMADOL HYDROCHLORIDE. [Suspect]
     Active Substance: TRAMADOL HYDROCHLORIDE
     Indication: NEUROPATHY PERIPHERAL
     Dosage: 50 MG, UNK
     Route: 065
  7. TRAMADOL HYDROCHLORIDE. [Suspect]
     Active Substance: TRAMADOL HYDROCHLORIDE
     Dosage: 100 MG, UNK
     Route: 065
  8. MELATONIN [Suspect]
     Active Substance: MELATONIN
     Indication: OVERDOSE
     Dosage: 25 DF, SINGLE
     Route: 065
  9. VICODIN [Concomitant]
     Active Substance: ACETAMINOPHEN\HYDROCODONE BITARTRATE
     Indication: INTERVERTEBRAL DISC DEGENERATION
     Route: 065

REACTIONS (8)
  - Dissociative disorder [Recovered/Resolved]
  - Feeling abnormal [Unknown]
  - Overdose [Unknown]
  - Weight decreased [Unknown]
  - Withdrawal syndrome [Recovered/Resolved]
  - Suicide attempt [Unknown]
  - Suicidal ideation [Recovered/Resolved]
  - Drug effect decreased [Recovered/Resolved]

NARRATIVE: CASE EVENT DATE: 201511
